FAERS Safety Report 7601474-5 (Version None)
Quarter: 2011Q3

REPORT INFORMATION
  Report Type: 
  Country: None (occurrence: None)
  Receive Date: 20110711
  Receipt Date: 20110706
  Transmission Date: 20111222
  Serious: Yes (Other)
  Sender: FDA-Public Use
  Company Number: GR-PFIZER INC-2011150723

PATIENT
  Age: 20 Year
  Sex: Male
  Weight: 65 kg

DRUGS (3)
  1. INFLIXIMAB [Concomitant]
     Dosage: 2ND INFUSION
     Route: 042
  2. MEDROL ACETATE [Concomitant]
     Indication: COLITIS ULCERATIVE
     Dosage: 24 MG DAILY IN THE BEGINNING FOLLOWED BY A 4 MG GRADUAL DECREASE EVERY WEEK
     Route: 048
  3. SOLU-MEDROL [Suspect]
     Indication: ALLERGY PROPHYLAXIS
     Dosage: 80 MG (TOTAL)
     Route: 042
     Dates: start: 20110210, end: 20110210

REACTIONS (2)
  - RASH PAPULAR [None]
  - ERYTHEMA [None]
